FAERS Safety Report 7981202-4 (Version None)
Quarter: 2011Q4

REPORT INFORMATION
  Report Type: 
  Country: None (occurrence: None)
  Receive Date: 20111212
  Receipt Date: 20111125
  Transmission Date: 20120403
  Serious: Yes (Death, Congenital Anomaly)
  Sender: FDA-Public Use
  Company Number: 1000026020

PATIENT
  Sex: Female
  Weight: 0.11 kg

DRUGS (3)
  1. AKARIN CITALOPRAM) [Concomitant]
  2. CITALOPRAM HYDROBROMIDE [Suspect]
     Indication: DEPRESSION
     Dosage: 30 MG (30 MG, 1 IN 1 D) TRANSPLACENTAL
     Route: 064
     Dates: start: 20030730
  3. REMERON [Concomitant]

REACTIONS (3)
  - ANENCEPHALY [None]
  - MATERNAL DRUGS AFFECTING FOETUS [None]
  - ABORTION INDUCED [None]
